FAERS Safety Report 17673069 (Version 1)
Quarter: 2020Q2

REPORT INFORMATION
  Report Type: Other
  Country: US (occurrence: US)
  Receive Date: 20200415
  Receipt Date: 20200415
  Transmission Date: 20200713
  Serious: No
  Sender: FDA-Public Use
  Company Number: US-ALKERMES INC.-ALK-2020-000667

PATIENT
  Age: 20 Year
  Sex: Female

DRUGS (1)
  1. VIVITROL [Suspect]
     Active Substance: NALTREXONE
     Indication: DRUG DEPENDENCE
     Dosage: 380 MG, QMO
     Route: 030

REACTIONS (3)
  - Maternal exposure timing unspecified [Unknown]
  - Maternal drugs affecting foetus [Unknown]
  - Pregnancy [Unknown]

NARRATIVE: CASE EVENT DATE: 20191218
